FAERS Safety Report 21521883 (Version 2)
Quarter: 2023Q1

REPORT INFORMATION
  Report Type: Report from Study
  Country: CA (occurrence: CA)
  Receive Date: 20221028
  Receipt Date: 20230124
  Transmission Date: 20230417
  Serious: Yes (Other)
  Sender: FDA-Public Use
  Company Number: CA-BAUSCH-BL-2022-024406

PATIENT
  Age: 52 Year
  Sex: Male

DRUGS (6)
  1. METFORMIN [Suspect]
     Active Substance: METFORMIN HYDROCHLORIDE
     Indication: Blood glucose increased
     Route: 065
  2. METFORMIN [Suspect]
     Active Substance: METFORMIN HYDROCHLORIDE
     Route: 065
  3. ENTYVIO [Suspect]
     Active Substance: VEDOLIZUMAB
     Indication: Colitis ulcerative
     Dosage: ENTYVIO FOR I.V. INFUSION?POWDER FOR SOLUTION INTRAVENOUS
     Route: 042
  4. ENTYVIO [Suspect]
     Active Substance: VEDOLIZUMAB
     Route: 042
  5. PERINDOPRIL ERBUMINE [Concomitant]
     Active Substance: PERINDOPRIL ERBUMINE
     Indication: Product used for unknown indication
  6. CYANOCOBALAMIN [Concomitant]
     Active Substance: CYANOCOBALAMIN
     Indication: Product used for unknown indication

REACTIONS (10)
  - Colitis ulcerative [Unknown]
  - Diarrhoea haemorrhagic [Unknown]
  - Diabetes mellitus [Unknown]
  - Localised infection [Unknown]
  - Poor peripheral circulation [Unknown]
  - Blood glucose increased [Unknown]
  - Abdominal pain [Unknown]
  - Diarrhoea [Unknown]
  - Fatigue [Unknown]
  - Therapeutic reaction time decreased [Unknown]
